FAERS Safety Report 8987411 (Version 1)
Quarter: 2012Q4

REPORT INFORMATION
  Report Type: 
  Country: FR (occurrence: FR)
  Receive Date: 20121227
  Receipt Date: 20121227
  Transmission Date: 20130627
  Serious: Yes (Other)
  Sender: FDA-Public Use
  Company Number: FR-ASTRAZENECA-2012SE95354

PATIENT
  Age: 26 Year
  Sex: Female

DRUGS (3)
  1. BUPIVACAINE [Suspect]
     Indication: SPINAL ANAESTHESIA
     Route: 037
  2. ROPIVACAINE [Suspect]
     Indication: POSTOPERATIVE ANALGESIA
  3. SUFENTANIL [Concomitant]
     Indication: SPINAL ANAESTHESIA

REACTIONS (4)
  - Dysgeusia [Recovered/Resolved]
  - Dysgeusia [Recovered/Resolved]
  - Headache [Recovered/Resolved]
  - Visual impairment [Recovered/Resolved]
